FAERS Safety Report 8164125-X (Version None)
Quarter: 2012Q1

REPORT INFORMATION
  Report Type: 
  Country: None (occurrence: None)
  Receive Date: 20120224
  Receipt Date: 20120216
  Transmission Date: 20120608
  Serious: Yes (Other)
  Sender: FDA-Public Use
  Company Number: US-PFIZER INC-2011272785

PATIENT
  Sex: Female
  Weight: 121.9 kg

DRUGS (11)
  1. MULTI-VITAMINS [Concomitant]
  2. BETAMETHASONE [Concomitant]
     Dosage: 0.05 UNK, UNK
  3. CALCIUM [Concomitant]
  4. OXYCODONE HCL [Suspect]
     Dosage: UNK
     Dates: end: 20111021
  5. PRILOSEC [Concomitant]
     Dosage: 20 MG, UNK
  6. LOESTRIN 1.5/30 [Concomitant]
  7. DOVONEX [Concomitant]
     Dosage: .05 %, UNK
  8. LEVOXYL [Concomitant]
     Dosage: 125 MG, UNK
  9. ENBREL [Suspect]
     Indication: PSORIASIS
     Dosage: 50 MG, QWK
     Dates: start: 20110701
  10. METHOTREXATE [Concomitant]
     Dosage: 25 MG, QWK
  11. FOLIC ACID [Concomitant]

REACTIONS (15)
  - CEREBROVASCULAR ACCIDENT [None]
  - LIP SWELLING [None]
  - UNDERSENSING [None]
  - DISORIENTATION [None]
  - HYPERSENSITIVITY [None]
  - VOMITING [None]
  - DRUG HYPERSENSITIVITY [None]
  - MIGRAINE [None]
  - SYSTOLIC HYPERTENSION [None]
  - DRUG EFFECT DECREASED [None]
  - VISUAL IMPAIRMENT [None]
  - VISUAL FIELD DEFECT [None]
  - CEREBRAL HAEMORRHAGE [None]
  - CONVULSION [None]
  - HEADACHE [None]
